FAERS Safety Report 18681309 (Version 1)
Quarter: 2020Q4

REPORT INFORMATION
  Report Type: Spontaneous
  Country: US (occurrence: US)
  Receive Date: 20201229
  Receipt Date: 20201229
  Transmission Date: 20210114
  Serious: Yes (Other)
  Sender: FDA-Public Use
  Company Number: None

PATIENT
  Age: 58 Year
  Sex: Male

DRUGS (1)
  1. BAMLANIVIMAB INJ [Suspect]
     Active Substance: BAMLANIVIMAB
     Indication: COVID-19
     Dosage: ?          OTHER FREQUENCY:1 X ONLY;?
     Route: 041
     Dates: start: 20201228, end: 20201228

REACTIONS (6)
  - Dizziness [None]
  - Gait disturbance [None]
  - Pyrexia [None]
  - Headache [None]
  - Asthenia [None]
  - Chills [None]

NARRATIVE: CASE EVENT DATE: 20201228
